FAERS Safety Report 7568852-4 (Version None)
Quarter: 2011Q2

REPORT INFORMATION
  Report Type: 
  Country: None (occurrence: None)
  Receive Date: 20110623
  Receipt Date: 20110608
  Transmission Date: 20111010
  Serious: No
  Sender: FDA-Public Use
  Company Number: US-B.I. PHARMACEUTICALS,INC./RIDGEFIELD-2011-BP-01443BP

PATIENT
  Sex: Female
  Weight: 100.7 kg

DRUGS (11)
  1. MICARDIS [Suspect]
     Indication: HYPERTENSION
     Dosage: 40 MG
     Route: 048
     Dates: start: 20100404
  2. VITAMIN B-12 [Concomitant]
     Indication: SUPPLEMENTATION THERAPY
  3. ASTELIN [Concomitant]
     Indication: HYPERSENSITIVITY
  4. VITAMIN D [Concomitant]
     Indication: SUPPLEMENTATION THERAPY
  5. FISH OIL [Concomitant]
     Indication: SUPPLEMENTATION THERAPY
  6. HYDROCHLOROTHIAZIDE [Concomitant]
     Dosage: 12.5 MG
  7. ESTRACE [Concomitant]
     Indication: HORMONE REPLACEMENT THERAPY
     Dosage: 2 MG
     Dates: end: 20110101
  8. DEPO-MEDROL [Concomitant]
     Indication: BACK PAIN
  9. LORAZEPAM [Concomitant]
  10. CALCIUM CARBONATE [Concomitant]
     Indication: SUPPLEMENTATION THERAPY
  11. MULTI-VITAMIN [Concomitant]
     Indication: SUPPLEMENTATION THERAPY

REACTIONS (13)
  - URTICARIA [None]
  - PRURITUS [None]
  - UPPER RESPIRATORY TRACT INFECTION [None]
  - ASTHENIA [None]
  - NASOPHARYNGITIS [None]
  - DYSPNOEA [None]
  - PRURITUS GENERALISED [None]
  - RHINORRHOEA [None]
  - FATIGUE [None]
  - WEIGHT DECREASED [None]
  - OEDEMA PERIPHERAL [None]
  - DIZZINESS [None]
  - VERTIGO [None]
